FAERS Safety Report 11418442 (Version 1)
Quarter: 2015Q3

REPORT INFORMATION
  Report Type: Spontaneous
  Country: US (occurrence: US)
  Receive Date: 20150826
  Receipt Date: 20150826
  Transmission Date: 20151125
  Serious: No
  Sender: FDA-Public Use
  Company Number: US-NOVEN PHARMACEUTICALS, INC.-US2015000402

PATIENT
  Age: 59 Year
  Sex: Female

DRUGS (3)
  1. ARMOUR THYROID [Concomitant]
     Active Substance: THYROID, PORCINE\THYROID, UNSPECIFIED
     Indication: THYROID DISORDER
     Dosage: 90 MG, UNKNOWN
  2. MINIVELLE [Suspect]
     Active Substance: ESTRADIOL
     Indication: HOT FLUSH
     Dosage: 0.0375 MG, 2/WK
     Route: 062
     Dates: end: 20150606
  3. MINIVELLE [Suspect]
     Active Substance: ESTRADIOL
     Indication: NIGHT SWEATS

REACTIONS (3)
  - No adverse event [Unknown]
  - Product packaging quantity issue [Unknown]
  - Drug dose omission [Unknown]

NARRATIVE: CASE EVENT DATE: 20150606
